FAERS Safety Report 9522508 (Version 1)
Quarter: 2013Q1

REPORT INFORMATION
  Report Type: Spontaneous
  Country: US (occurrence: None)
  Receive Date: 20130305
  Receipt Date: 20130305
  Transmission Date: 20140127
  Serious: Yes (Other)
  Sender: FDA-Public Use
  Company Number: 163-21880-08041912

PATIENT
  Age: 59 Year
  Sex: Female
  Weight: 80.29 kg

DRUGS (6)
  1. REVLIMID [Suspect]
     Indication: PLASMA CELL MYELOMA
     Dosage: 10 MG, 1 IN 1 D, PO
     Route: 048
     Dates: start: 200603
  2. NEURONTIN (GABAPENTIN) (CAPSULES) [Concomitant]
  3. FLEXERIL (CYCLOGENZAPRINE HYDROCHLORIDE) (TABLETS) [Concomitant]
  4. ZOLOFT (SERTRALINE HYDROCHLORIDE) (TABLETS) [Concomitant]
  5. HCTZ (HYDROCHLOROTHIAZIDE) (TABLETS) [Concomitant]
  6. ZETIA (EZETIMIBE) (TABLETS) [Concomitant]

REACTIONS (4)
  - Fatigue [None]
  - Ear discomfort [None]
  - Pruritus [None]
  - Erythema [None]
